FAERS Safety Report 5841763-8 (Version None)
Quarter: 2008Q3

REPORT INFORMATION
  Report Type: 
  Country: None (occurrence: None)
  Receive Date: 20080811
  Receipt Date: 20080811
  Transmission Date: 20090109
  Serious: Yes (Life-Threatening, Hospitalization)
  Sender: FDA-Public Use
  Company Number: None

PATIENT
  Age: 69 Year
  Sex: Male
  Weight: 73.9363 kg

DRUGS (3)
  1. ERBITUX [Suspect]
     Indication: RECURRENT CANCER
     Dosage: 400MG/M2 = 750 MG DOSE ONE TIME IV
     Route: 042
     Dates: start: 20080807, end: 20080807
  2. ERBITUX [Suspect]
     Indication: SQUAMOUS CELL CARCINOMA
     Dosage: 400MG/M2 = 750 MG DOSE ONE TIME IV
     Route: 042
     Dates: start: 20080807, end: 20080807
  3. ERBITUX [Suspect]

REACTIONS (5)
  - CARDIO-RESPIRATORY ARREST [None]
  - DYSPNOEA [None]
  - FEELING HOT [None]
  - FOAMING AT MOUTH [None]
  - INFUSION RELATED REACTION [None]
